FAERS Safety Report 4370644-4 (Version None)
Quarter: 2004Q2

REPORT INFORMATION
  Report Type: 
  Country: None (occurrence: None)
  Receive Date: 20040525
  Receipt Date: 20040510
  Transmission Date: 20050107
  Serious: Yes (Hospitalization)
  Sender: FDA-Public Use
  Company Number: GB-JNJFOC-20040501769

PATIENT
  Age: 31 Year
  Sex: Female

DRUGS (6)
  1. HALOPERIDOL [Suspect]
     Dosage: 2.5-5MG/DAY
     Dates: start: 20030113, end: 20030117
  2. CLOZARIL [Suspect]
     Indication: SCHIZOPHRENIA
     Dosage: 75 MG, IN 1 DAY, ORAL
     Route: 048
     Dates: start: 20030111, end: 20030117
  3. AMISULPRIDE (AMISULPRIDE) [Suspect]
     Dosage: 400 MG, 2 IN 1 DAY, ORAL
     Route: 048
     Dates: start: 20030113, end: 20030117
  4. VALPROATE SODIUM [Concomitant]
  5. PROCYCLIDINE HYDROCHLORIDE 2MG TAB [Concomitant]
  6. LORAZEPAM [Concomitant]

REACTIONS (6)
  - DRUG INTERACTION [None]
  - HALLUCINATION [None]
  - NEUROLEPTIC MALIGNANT SYNDROME [None]
  - TREATMENT NONCOMPLIANCE [None]
  - URINARY INCONTINENCE [None]
  - URINARY TRACT INFECTION [None]
